FAERS Safety Report 10229429 (Version 1)
Quarter: 2014Q2

REPORT INFORMATION
  Report Type: Spontaneous
  Country: US (occurrence: CA)
  Receive Date: 20140611
  Receipt Date: 20140611
  Transmission Date: 20141212
  Serious: Yes (Other)
  Sender: FDA-Public Use
  Company Number: 2014SP003135

PATIENT
  Age: 62 Year
  Sex: Female
  Weight: 114 kg

DRUGS (3)
  1. METHOTREXATE [Suspect]
     Indication: ARTHRITIS
     Dates: start: 201011
  2. ENBREL [Suspect]
     Indication: RHEUMATOID ARTHRITIS
     Route: 058
     Dates: start: 201308, end: 201311
  3. HYDROXYCHLOROQUINE PHOSPHATE [Concomitant]

REACTIONS (4)
  - Lung disorder [Unknown]
  - Respiratory tract infection [Recovered/Resolved]
  - Nasopharyngitis [Unknown]
  - Fatigue [Unknown]
